FAERS Safety Report 4396328-4 (Version None)
Quarter: 2004Q3

REPORT INFORMATION
  Report Type: 
  Country: None (occurrence: None)
  Receive Date: 20040708
  Receipt Date: 20040623
  Transmission Date: 20050211
  Serious: Yes (Life-Threatening)
  Sender: FDA-Public Use
  Company Number: 2004-BP-03762RP

PATIENT
  Age: 50 Year
  Sex: Male

DRUGS (1)
  1. MICARDIS [Suspect]
     Indication: HYPERTENSION
     Dosage: 40 MG, 1 TAB OD
     Route: 048
     Dates: start: 20030912

REACTIONS (1)
  - CEREBROVASCULAR ACCIDENT [None]
